FAERS Safety Report 23843275 (Version 1)
Quarter: 2024Q2

REPORT INFORMATION
  Report Type: Report from Study
  Country: US (occurrence: US)
  Receive Date: 20240510
  Receipt Date: 20240510
  Transmission Date: 20240716
  Serious: No
  Sender: FDA-Public Use
  Company Number: US-ALXN-202405USA000244US

PATIENT

DRUGS (1)
  1. STRENSIQ [Suspect]
     Active Substance: ASFOTASE ALFA
     Indication: Product used for unknown indication
     Dosage: UNK
     Route: 065

REACTIONS (10)
  - Injection site pruritus [Unknown]
  - Back pain [Unknown]
  - Pain in extremity [Unknown]
  - Injection site bruising [Unknown]
  - Pruritus [Unknown]
  - Injection site hypersensitivity [Unknown]
  - Fatigue [Unknown]
  - Tendon pain [Unknown]
  - Muscle tightness [Unknown]
  - Headache [Unknown]

NARRATIVE: CASE EVENT DATE: 20231207
